FAERS Safety Report 6428477-0 (Version None)
Quarter: 2009Q4

REPORT INFORMATION
  Report Type: 
  Country: None (occurrence: None)
  Receive Date: 20091105
  Receipt Date: 20091103
  Transmission Date: 20100525
  Serious: No
  Sender: FDA-Public Use
  Company Number: D0063030A

PATIENT
  Sex: Female
  Weight: 61.9 kg

DRUGS (4)
  1. REQUIP [Suspect]
     Indication: PARKINSON'S DISEASE
     Dosage: 2MG PER DAY
     Route: 048
     Dates: start: 20090701
  2. BISOPROLOL [Concomitant]
     Dosage: 5MG PER DAY
     Route: 048
  3. SEROQUEL [Concomitant]
     Dosage: 25MG SEE DOSAGE TEXT
     Route: 048
     Dates: end: 20091001
  4. DOLOVISANO [Concomitant]
     Dosage: 750MG WEEKLY
     Route: 048

REACTIONS (3)
  - BLOOD AMYLASE INCREASED [None]
  - LIPASE INCREASED [None]
  - PANCREATIC DISORDER [None]
